FAERS Safety Report 21780899 (Version 2)
Quarter: 2024Q2

REPORT INFORMATION
  Report Type: Spontaneous
  Country: DE (occurrence: DE)
  Receive Date: 20221227
  Receipt Date: 20240612
  Transmission Date: 20240715
  Serious: Yes (Other)
  Sender: FDA-Public Use
  Company Number: DE-ABBVIE-4204107

PATIENT
  Age: 76 Year
  Sex: Female
  Weight: 45 kg

DRUGS (1)
  1. RINVOQ [Suspect]
     Active Substance: UPADACITINIB
     Indication: Rheumatoid arthritis
     Route: 048
     Dates: start: 2020

REACTIONS (3)
  - Interstitial lung disease [Unknown]
  - Rheumatoid arthritis-associated interstitial lung disease [Unknown]
  - Organising pneumonia [Unknown]
